FAERS Safety Report 10583543 (Version 1)
Quarter: 2014Q4

REPORT INFORMATION
  Report Type: Spontaneous
  Country: BR (occurrence: None)
  Receive Date: 20141112
  Receipt Date: 20141112
  Transmission Date: 20150529
  Serious: Yes (Hospitalization)
  Sender: FDA-Public Use
  Company Number: IPC201410-000591

PATIENT
  Age: 78 Year
  Sex: Male

DRUGS (4)
  1. ADCETRIS [Suspect]
     Active Substance: BRENTUXIMAB VEDOTIN
     Indication: HODGKIN^S DISEASE
     Dosage: UNK, UNKNOWN
     Dates: start: 20140915, end: 20140915
  2. MONTEUKAST (MONTEUKAST SODIUM) [Concomitant]
  3. SERETIDE [Concomitant]
     Active Substance: FLUTICASONE FUROATE\SALMETEROL XINAFOATE
  4. APURIN (ALLOPURINOL) [Concomitant]

REACTIONS (1)
  - Pneumocystis jirovecii infection [None]
